FAERS Safety Report 5442579-7 (Version None)
Quarter: 2007Q3

REPORT INFORMATION
  Report Type: 
  Country: None (occurrence: None)
  Receive Date: 20070904
  Receipt Date: 20070823
  Transmission Date: 20080115
  Serious: Yes (Other)
  Sender: FDA-Public Use
  Company Number: DE-SHR-DE-2007-023747

PATIENT
  Age: 71 Year
  Sex: Female
  Weight: 110 kg

DRUGS (6)
  1. MAGNEVIST [Suspect]
     Dosage: 20 ML, 1 DOSE
     Route: 042
     Dates: start: 20040819, end: 20040819
  2. MAGNEVIST [Suspect]
     Dosage: UNK, 1 DOSE
     Route: 042
     Dates: start: 20040903, end: 20040903
  3. MAGNEVIST [Suspect]
     Dosage: 21 ML, 1 DOSE
     Route: 042
     Dates: start: 20040924, end: 20040924
  4. MAGNEVIST [Suspect]
     Dosage: 20 ML, 1 DOSE
     Route: 042
     Dates: start: 20041216, end: 20041216
  5. MAGNEVIST [Suspect]
     Dosage: 33 ML, 1 DOSE
     Route: 042
     Dates: start: 20050107, end: 20050107
  6. MULTIHANCE [Suspect]
     Indication: NUCLEAR MAGNETIC RESONANCE IMAGING ABDOMINAL
     Route: 042
     Dates: start: 20040917, end: 20040917

REACTIONS (1)
  - NEPHROGENIC SYSTEMIC FIBROSIS [None]
